FAERS Safety Report 15705412 (Version 3)
Quarter: 2019Q1

REPORT INFORMATION
  Report Type: Report from Study
  Country: US (occurrence: US)
  Receive Date: 20181210
  Receipt Date: 20190213
  Transmission Date: 20190417
  Serious: Yes (Hospitalization)
  Sender: FDA-Public Use
  Company Number: US-UCBSA-2018053002

PATIENT
  Age: 34 Year
  Sex: Female
  Weight: 97 kg

DRUGS (16)
  1. CERTOLIZUMAB PEGOL CD [Suspect]
     Active Substance: CERTOLIZUMAB PEGOL
     Indication: CROHN^S DISEASE
     Dosage: 400 MG, EV 2 WEEKS(QOW)
     Dates: start: 20140415
  2. NARCAN [Concomitant]
     Active Substance: NALOXONE HYDROCHLORIDE
     Indication: PRODUCT USED FOR UNKNOWN INDICATION
     Dosage: UNK
  3. ENOXAPARIN [Concomitant]
     Active Substance: ENOXAPARIN
     Indication: PRODUCT USED FOR UNKNOWN INDICATION
  4. FLINTSTONES [Concomitant]
     Indication: PRODUCT USED FOR UNKNOWN INDICATION
     Route: 048
  5. HYDROMORPHONE [Concomitant]
     Active Substance: HYDROMORPHONE
     Indication: PRODUCT USED FOR UNKNOWN INDICATION
  6. OXYCODONE [Concomitant]
     Active Substance: OXYCODONE
     Indication: PRODUCT USED FOR UNKNOWN INDICATION
  7. LORAZEPAM. [Concomitant]
     Active Substance: LORAZEPAM
     Indication: PRODUCT USED FOR UNKNOWN INDICATION
  8. ZOFRAN [Concomitant]
     Active Substance: ONDANSETRON HYDROCHLORIDE
     Indication: PRODUCT USED FOR UNKNOWN INDICATION
     Dosage: UNK
  9. PREVNAR 13 [Concomitant]
     Active Substance: PNEUMOCOCCAL 13-VALENT CONJUGATE VACCINE
     Indication: PRODUCT USED FOR UNKNOWN INDICATION
  10. SCOPOLAMINE [Concomitant]
     Active Substance: SCOPOLAMINE
     Indication: PRODUCT USED FOR UNKNOWN INDICATION
  11. COZAAR [Concomitant]
     Active Substance: LOSARTAN POTASSIUM
     Indication: HYPERTENSION
  12. ULTRAM [Concomitant]
     Active Substance: TRAMADOL HYDROCHLORIDE
     Indication: PAIN
  13. MULTIVITAMINS [Concomitant]
     Active Substance: VITAMINS
     Indication: PRODUCT USED FOR UNKNOWN INDICATION
  14. DIAZEPAM. [Concomitant]
     Active Substance: DIAZEPAM
     Indication: PRODUCT USED FOR UNKNOWN INDICATION
  15. DOCUSATE SODIUM. [Concomitant]
     Active Substance: DOCUSATE SODIUM
     Indication: PRODUCT USED FOR UNKNOWN INDICATION
     Dosage: UNK
  16. LEXAPRO [Concomitant]
     Active Substance: ESCITALOPRAM OXALATE
     Indication: HYPERTENSION

REACTIONS (2)
  - Small intestinal obstruction [Recovered/Resolved]
  - Abdominal hernia [Recovered/Resolved]

NARRATIVE: CASE EVENT DATE: 20180714
